FAERS Safety Report 14530447 (Version 1)
Quarter: 2018Q1

REPORT INFORMATION
  Report Type: Spontaneous
  Country: US (occurrence: US)
  Receive Date: 20180214
  Receipt Date: 20180214
  Transmission Date: 20180509
  Serious: No
  Sender: FDA-Public Use
  Company Number: US-GLAXOSMITHKLINE-US2018023248

PATIENT
  Sex: Female

DRUGS (1)
  1. ABREVA [Suspect]
     Active Substance: DOCOSANOL
     Indication: PRODUCT USED FOR UNKNOWN INDICATION
     Dosage: UNK
     Dates: start: 20180208

REACTIONS (6)
  - Application site pain [Unknown]
  - Application site irritation [Unknown]
  - Application site rash [Unknown]
  - Hypersensitivity [Unknown]
  - Application site reaction [Unknown]
  - Application site erythema [Unknown]

NARRATIVE: CASE EVENT DATE: 20180208
